FAERS Safety Report 8959592 (Version 1)
Quarter: 2012Q4

REPORT INFORMATION
  Report Type: 
  Country: CA (occurrence: CA)
  Receive Date: 20121212
  Receipt Date: 20121212
  Transmission Date: 20130627
  Serious: No
  Sender: FDA-Public Use
  Company Number: CA-B.I. PHARMACEUTICALS,INC./RIDGEFIELD-2012-BI-01594BP

PATIENT
  Sex: Male

DRUGS (1)
  1. MIRAPEX [Suspect]
     Indication: PARKINSON^S DISEASE

REACTIONS (8)
  - Pathological gambling [Not Recovered/Not Resolved]
  - Hyperphagia [Unknown]
  - Compulsive shopping [Unknown]
  - Depression [Recovered/Resolved]
  - Aggression [Unknown]
  - Suspiciousness [Unknown]
  - Alcoholism [Recovered/Resolved]
  - Suicidal ideation [Unknown]
